FAERS Safety Report 5082124-1 (Version None)
Quarter: 2006Q3

REPORT INFORMATION
  Report Type: 
  Country: None (occurrence: None)
  Receive Date: 20060817
  Receipt Date: 20060809
  Transmission Date: 20061208
  Serious: Yes (Other)
  Sender: FDA-Public Use
  Company Number: US-JNJFOC-20060802368

PATIENT
  Age: 42 Year
  Sex: Male
  Weight: 68.6 kg

DRUGS (6)
  1. REMICADE [Suspect]
     Route: 042
  2. REMICADE [Suspect]
     Route: 042
  3. REMICADE [Suspect]
     Route: 042
  4. REMICADE [Suspect]
     Indication: CROHN'S DISEASE
     Route: 042
  5. ACETAMINOPHEN [Concomitant]
  6. BENADRYL [Concomitant]
     Indication: PREMEDICATION

REACTIONS (4)
  - CHEST DISCOMFORT [None]
  - COUGH [None]
  - INFUSION RELATED REACTION [None]
  - THROAT TIGHTNESS [None]
